FAERS Safety Report 15374263 (Version 1)
Quarter: 2018Q3

REPORT INFORMATION
  Report Type: Spontaneous
  Country: US (occurrence: US)
  Receive Date: 20180912
  Receipt Date: 20180912
  Transmission Date: 20181010
  Serious: Yes (Hospitalization, Other)
  Sender: FDA-Public Use
  Company Number: US-ALVOGEN-2018-ALVOGEN-097334

PATIENT
  Age: 4 Year
  Sex: Female

DRUGS (1)
  1. DOXORUBICIN [Suspect]
     Active Substance: DOXORUBICIN
     Indication: RHABDOMYOSARCOMA

REACTIONS (4)
  - Pulmonary resection [Unknown]
  - Ejection fraction decreased [Unknown]
  - Cardiac dysfunction [Unknown]
  - Dyspnoea exertional [Unknown]
